FAERS Safety Report 21363668 (Version 1)
Quarter: 2022Q3

REPORT INFORMATION
  Report Type: Spontaneous
  Country: SG (occurrence: SG)
  Receive Date: 20220922
  Receipt Date: 20220922
  Transmission Date: 20221026
  Serious: Yes (Other)
  Sender: FDA-Public Use
  Company Number: SG-AMGEN-SGPSP2022158429

PATIENT

DRUGS (4)
  1. ADALIMUMAB [Suspect]
     Active Substance: ADALIMUMAB
     Indication: Juvenile idiopathic arthritis
     Dosage: Q4WK (FOR 6 MONTHS)
     Route: 065
  2. ADALIMUMAB [Suspect]
     Active Substance: ADALIMUMAB
     Dosage: EXTENDING FREQUENCY BY EVERY 2 WEEKS FOR 3 CYCLES UNTIL REACHING 12 WEEKLY INTERVAL FOR 3 CYCLES
     Route: 065
  3. ETANERCEPT [Suspect]
     Active Substance: ETANERCEPT
     Indication: Juvenile idiopathic arthritis
     Dosage: Q2WK (FOR 6 MONTHS)
     Route: 065
  4. ETANERCEPT [Suspect]
     Active Substance: ETANERCEPT
     Dosage: EXTENDING FREQUENCY BY EVERY 2 WEEKS FOR 3 CYCLES UNTIL REACHING 12 WEEKLY INTERVAL FOR 3 CYCLES
     Route: 065

REACTIONS (1)
  - Juvenile idiopathic arthritis [Unknown]
